FAERS Safety Report 6340437-7 (Version None)
Quarter: 2009Q3

REPORT INFORMATION
  Report Type: 
  Country: None (occurrence: None)
  Receive Date: 20090904
  Receipt Date: 20070814
  Transmission Date: 20100115
  Serious: Yes (Hospitalization, Other)
  Sender: FDA-Public Use
  Company Number: US-ASTRAZENECA-2006UW03269

PATIENT
  Age: 42 Year
  Sex: Male
  Weight: 140.2 kg

DRUGS (48)
  1. SEROQUEL [Suspect]
     Indication: DEPRESSION
     Route: 048
     Dates: start: 19990101, end: 20020712
  2. SEROQUEL [Suspect]
     Route: 048
     Dates: start: 20020522
  3. SEROQUEL [Suspect]
     Route: 048
     Dates: start: 20030919
  4. ZYPREXA [Concomitant]
     Dates: start: 20020101, end: 20030101
  5. ZYPREXA [Concomitant]
     Dates: start: 20020521
  6. CLONAZEPAM [Concomitant]
  7. CELEXA [Concomitant]
  8. CELEXA [Concomitant]
     Route: 048
     Dates: start: 20010703
  9. EFFEXOR XR [Concomitant]
  10. EFFEXOR XR [Concomitant]
     Route: 048
     Dates: start: 20010703
  11. ZONEGRAN [Concomitant]
  12. ZONEGRAN [Concomitant]
     Dates: start: 20040701
  13. LEXAPRO [Concomitant]
  14. LEXAPRO [Concomitant]
     Dosage: 10 MG - 20 MG DAILY
     Dates: start: 20031211
  15. METRONIDAZOLE [Concomitant]
  16. DOXYCYCLINE [Concomitant]
  17. HYOSCYAMINE [Concomitant]
  18. VALIUM [Concomitant]
     Indication: ANXIETY
  19. VALIUM [Concomitant]
     Dates: start: 20031211
  20. METHYLPREDNISOLONE [Concomitant]
  21. VYTORIN [Concomitant]
  22. NITROGLYCERIN [Concomitant]
  23. METOPROLOL [Concomitant]
  24. METOPROLOL [Concomitant]
     Dates: start: 20070410
  25. LISINOPRIL [Concomitant]
  26. ASPIRIN [Concomitant]
  27. PLAVIX [Concomitant]
  28. NAPROSYN [Concomitant]
  29. SOMA [Concomitant]
  30. FLAGYL [Concomitant]
  31. AMBIEN [Concomitant]
     Indication: INSOMNIA
  32. AMBIEN [Concomitant]
     Dates: start: 20030729
  33. ZESTRIL [Concomitant]
  34. ELAVIL [Concomitant]
  35. PROCTOFOAM [Concomitant]
  36. BENTYL [Concomitant]
  37. LEVBID [Concomitant]
  38. TRAZODONE [Concomitant]
  39. TRAZODONE [Concomitant]
     Dates: start: 20010818
  40. BUSPAR [Concomitant]
     Dosage: 7.5 MG - 30 MG DAILY
     Dates: start: 20010703
  41. PREVACID [Concomitant]
     Indication: GASTROOESOPHAGEAL REFLUX DISEASE
     Dates: start: 20010703
  42. TEMAZEPAM [Concomitant]
     Route: 048
     Dates: start: 20010703
  43. PAXIL [Concomitant]
     Dates: start: 19980814
  44. SERZONE [Concomitant]
     Indication: DEPRESSION
     Dates: start: 19980814
  45. ALTACE [Concomitant]
     Dosage: 5 MG - 10 MG DAILY
     Dates: start: 20030729
  46. TRICOR [Concomitant]
     Dates: start: 20040701
  47. LIPITOR [Concomitant]
     Dosage: 10 MG - 20 MG DAILY
     Route: 048
     Dates: start: 20010818
  48. KLONOPIN [Concomitant]
     Dates: start: 20020522

REACTIONS (10)
  - CARDIAC DISORDER [None]
  - DIABETES MELLITUS [None]
  - DIABETES MELLITUS INADEQUATE CONTROL [None]
  - DIABETIC COMA [None]
  - DIABETIC GASTROPARESIS [None]
  - DIABETIC KETOACIDOSIS [None]
  - HYPERGLYCAEMIA [None]
  - TYPE 1 DIABETES MELLITUS [None]
  - TYPE 2 DIABETES MELLITUS [None]
  - WEIGHT INCREASED [None]
